FAERS Safety Report 24728622 (Version 1)
Quarter: 2024Q4

REPORT INFORMATION
  Report Type: Spontaneous
  Country: DE (occurrence: DE)
  Receive Date: 20241212
  Receipt Date: 20241212
  Transmission Date: 20250114
  Serious: Yes (Hospitalization)
  Sender: LUNDBECK
  Company Number: DE-SANOFI-02331095

PATIENT

DRUGS (1)
  1. SABRIL [Suspect]
     Active Substance: VIGABATRIN
     Indication: Product used for unknown indication
     Dosage: 250 MG, TID

REACTIONS (2)
  - Hospitalisation [Unknown]
  - Off label use [Unknown]
